FAERS Safety Report 11138504 (Version 1)
Quarter: 2015Q2

REPORT INFORMATION
  Report Type: Report from Study
  Country: GB (occurrence: GB)
  Receive Date: 20150527
  Receipt Date: 20150527
  Transmission Date: 20150821
  Serious: Yes (Death)
  Sender: FDA-Public Use
  Company Number: GB-AMGEN-GBRCT2013081408

PATIENT
  Age: 24 Year
  Sex: Female
  Weight: 50.9 kg

DRUGS (1)
  1. ETANERCEPT [Suspect]
     Active Substance: ETANERCEPT
     Indication: JUVENILE IDIOPATHIC ARTHRITIS
     Dosage: 25 MG, 2 TIMES/WK
     Route: 065
     Dates: start: 20010912

REACTIONS (3)
  - Arthritis bacterial [Fatal]
  - Juvenile idiopathic arthritis [Fatal]
  - Sepsis [Fatal]
